FAERS Safety Report 6875959-3 (Version None)
Quarter: 2010Q3

REPORT INFORMATION
  Report Type: 
  Country: None (occurrence: None)
  Receive Date: 20100727
  Receipt Date: 20070712
  Transmission Date: 20110219
  Serious: Yes (Hospitalization, Other)
  Sender: FDA-Public Use
  Company Number: US-PFIZER INC-2006118290

PATIENT
  Sex: Male
  Weight: 113.4 kg

DRUGS (7)
  1. CELEBREX [Suspect]
     Indication: ARTHRITIS
     Dates: start: 19990101, end: 20010105
  2. VIOXX [Suspect]
     Indication: OSTEOARTHRITIS
     Dates: start: 20010101, end: 20040501
  3. NAPROXEN [Concomitant]
  4. NITROGLYCERIN [Concomitant]
  5. TENORMIN [Concomitant]
  6. VASOTEC [Concomitant]
  7. ZOCOR [Concomitant]

REACTIONS (1)
  - MYOCARDIAL INFARCTION [None]
